FAERS Safety Report 5485478-7 (Version None)
Quarter: 2007Q4

REPORT INFORMATION
  Report Type: 
  Country: None (occurrence: None)
  Receive Date: 20071010
  Receipt Date: 20071010
  Transmission Date: 20080405
  Serious: Yes (Life-Threatening, Hospitalization)
  Sender: FDA-Public Use
  Company Number: None

PATIENT
  Sex: Female

DRUGS (2)
  1. EPTIFIBATIDE [Suspect]
     Indication: CATHETERISATION CARDIAC
     Dosage: ONCE IV
     Route: 042
     Dates: start: 20070318, end: 20070318
  2. EPTIFIBATIDE [Suspect]
     Indication: CHEST PAIN
     Dosage: ONCE IV
     Route: 042
     Dates: start: 20070318, end: 20070318

REACTIONS (2)
  - HAEMORRHAGE [None]
  - RETROPERITONEAL HAEMATOMA [None]
